FAERS Safety Report 12021620 (Version 1)
Quarter: 2016Q1

REPORT INFORMATION
  Report Type: Report from Study
  Country: US (occurrence: US)
  Receive Date: 20160206
  Receipt Date: 20160206
  Transmission Date: 20160526
  Serious: No
  Sender: FDA-Public Use
  Company Number: US-ABBVIE-15K-163-1470185-00

PATIENT
  Sex: Male

DRUGS (2)
  1. HUMIRA [Suspect]
     Active Substance: ADALIMUMAB
     Indication: PSORIATIC ARTHROPATHY
     Route: 065
     Dates: start: 201505
  2. HUMIRA [Suspect]
     Active Substance: ADALIMUMAB
     Indication: PSORIASIS
     Route: 065
     Dates: end: 20150116

REACTIONS (8)
  - Decreased appetite [Unknown]
  - Myalgia [Unknown]
  - Fatigue [Unknown]
  - Neuropathy peripheral [Unknown]
  - Pruritus [Unknown]
  - Muscular weakness [Unknown]
  - Abdominal pain upper [Unknown]
  - Burning sensation [Unknown]

NARRATIVE: CASE EVENT DATE: 2015
